FAERS Safety Report 5520533-4 (Version None)
Quarter: 2007Q4

REPORT INFORMATION
  Report Type: 
  Country: None (occurrence: None)
  Receive Date: 20071119
  Receipt Date: 20071108
  Transmission Date: 20080405
  Serious: Yes (Hospitalization)
  Sender: FDA-Public Use
  Company Number: IR-JNJFOC-20071104349

PATIENT
  Age: 40 Year
  Sex: Male
  Weight: 52 kg

DRUGS (7)
  1. REMICADE [Suspect]
     Dosage: SIXTH DOSE
     Route: 042
  2. REMICADE [Suspect]
     Indication: PSORIATIC ARTHROPATHY
     Dosage: FIFTH DOSE
     Route: 042
  3. MTX [Suspect]
     Indication: DRUG USE FOR UNKNOWN INDICATION
     Route: 030
  4. VASODILATOR [Concomitant]
     Indication: MYOCARDIAL ISCHAEMIA
  5. LOSARTAN POTASSIUM [Concomitant]
     Indication: HYPERTENSION
  6. AMITRIPTYLINE HCL [Concomitant]
     Indication: ANXIETY
  7. INDOMETHACIN [Concomitant]
     Indication: PAIN

REACTIONS (4)
  - BLOOD PRESSURE INCREASED [None]
  - EPISTAXIS [None]
  - PSORIASIS [None]
  - PSORIATIC ARTHROPATHY [None]
